FAERS Safety Report 7496434-1 (Version None)
Quarter: 2011Q2

REPORT INFORMATION
  Report Type: 
  Country: None (occurrence: None)
  Receive Date: 20110523
  Receipt Date: 20110510
  Transmission Date: 20111010
  Serious: Yes (Other)
  Sender: FDA-Public Use
  Company Number: PHHY2011CA16080

PATIENT
  Sex: Female

DRUGS (1)
  1. ACLASTA [Suspect]
     Indication: OSTEOPOROSIS
     Route: 042
     Dates: start: 20100315

REACTIONS (5)
  - PAIN IN EXTREMITY [None]
  - DEPRESSION [None]
  - ORAL PAIN [None]
  - MALAISE [None]
  - GINGIVAL PAIN [None]
